FAERS Safety Report 7243825-X (Version None)
Quarter: 2011Q1

REPORT INFORMATION
  Report Type: 
  Country: None (occurrence: None)
  Receive Date: 20110125
  Receipt Date: 20110113
  Transmission Date: 20110831
  Serious: Yes (Hospitalization)
  Sender: FDA-Public Use
  Company Number: FR-BRISTOL-MYERS SQUIBB COMPANY-15500127

PATIENT
  Age: 76 Year
  Sex: Male

DRUGS (8)
  1. PERINDOPRIL [Concomitant]
  2. GLUCOPHAGE [Suspect]
     Dosage: TABLET
     Route: 048
     Dates: end: 20100607
  3. INIPOMP [Suspect]
     Route: 048
     Dates: end: 20100607
  4. CARDENSIEL [Suspect]
     Route: 048
     Dates: end: 20100607
  5. DIAMICRON [Suspect]
     Dosage: 30MG TABLET
     Route: 048
     Dates: end: 20100607
  6. ASPEGIC 325 [Suspect]
     Route: 048
     Dates: end: 20100607
  7. CIFLOX [Suspect]
     Dosage: CIFLOX 500MG TABLET
     Route: 048
     Dates: start: 20100322, end: 20100330
  8. INSULATARD [Concomitant]
     Dosage: INSULATARD INJECTION

REACTIONS (1)
  - CHOLANGITIS [None]
